FAERS Safety Report 17427827 (Version 1)
Quarter: 2020Q1

REPORT INFORMATION
  Report Type: Spontaneous
  Country: NL (occurrence: NL)
  Receive Date: 20200217
  Receipt Date: 20200217
  Transmission Date: 20200409
  Serious: Yes (Life-Threatening, Hospitalization, Other)
  Sender: FDA-Public Use
  Company Number: NL-MYLANLABS-2020M1018370

PATIENT
  Sex: Male
  Weight: 36 kg

DRUGS (1)
  1. OLANZAPINE. [Suspect]
     Active Substance: OLANZAPINE
     Indication: DECREASED APPETITE
     Dosage: TABLET, 10 MG (MILLIGRAM), 1 KEER PER DAG, WAS AFGEBOUWD VAN 10MG NAAR 2,5MG PER DAG
     Dates: start: 20160616, end: 20190311

REACTIONS (2)
  - Aggression [Recovered/Resolved]
  - Psychotic disorder [Recovered/Resolved]
